FAERS Safety Report 23359714 (Version 2)
Quarter: 2024Q1

REPORT INFORMATION
  Report Type: Other
  Country: CN (occurrence: None)
  Receive Date: 20240103
  Receipt Date: 20240108
  Transmission Date: 20240410
  Serious: Yes (Other)
  Sender: FDA-Public Use
  Company Number: CN-ROCHE-3483561

PATIENT
  Age: 65 Year
  Sex: Male

DRUGS (13)
  1. RITUXIMAB [Suspect]
     Active Substance: RITUXIMAB
     Indication: Follicular lymphoma
     Dosage: ON DAY 1, RB REGIMEN FOR 6 CYCLES. [RITUXIMAB 650 MG (375 MG/M2)]
     Route: 042
     Dates: start: 20200917, end: 20210227
  2. RITUXIMAB [Suspect]
     Active Substance: RITUXIMAB
     Dosage: 4 COURSES OF MAINTENANCE THERAPY
     Route: 042
     Dates: start: 202108, end: 20211027
  3. BENDAMUSTINE [Suspect]
     Active Substance: BENDAMUSTINE
     Indication: Follicular lymphoma
     Dosage: ON DAY 1,2, RB REGIMEN FOR 6 CYCLES (BENDAMUSTINE 70 MG/M2)
     Route: 065
     Dates: start: 20200917, end: 20210227
  4. ZANUBRUTINIB [Concomitant]
     Active Substance: ZANUBRUTINIB
  5. CYCLOPHOSPHAMIDE [Concomitant]
     Active Substance: CYCLOPHOSPHAMIDE
  6. DOXORUBICIN [Concomitant]
     Active Substance: DOXORUBICIN
  7. DEXAMETHASONE [Concomitant]
     Active Substance: DEXAMETHASONE
  8. METHOTREXATE [Concomitant]
     Active Substance: METHOTREXATE
  9. CYTARABINE [Concomitant]
     Active Substance: CYTARABINE
  10. CLADRIBINE [Concomitant]
     Active Substance: CLADRIBINE
  11. SEMUSTINE [Concomitant]
     Active Substance: SEMUSTINE
  12. CYTARABINE [Concomitant]
     Active Substance: CYTARABINE
  13. ETOPOSIDE [Concomitant]
     Active Substance: ETOPOSIDE

REACTIONS (1)
  - Disease progression [Recovering/Resolving]
